FAERS Safety Report 9298125 (Version 2)
Quarter: 2013Q3

REPORT INFORMATION
  Report Type: Report from Study
  Country: FR (occurrence: FR)
  Receive Date: 20130520
  Receipt Date: 20130704
  Transmission Date: 20140515
  Serious: Yes (Hospitalization)
  Sender: FDA-Public Use
  Company Number: FR-ELI_LILLY_AND_COMPANY-FR201305004030

PATIENT
  Age: 55 Year
  Sex: Male
  Weight: 95 kg

DRUGS (10)
  1. TERIPARATIDE [Suspect]
     Indication: OSTEOPOROTIC FRACTURE
     Dosage: 20 UG, QD
     Route: 058
     Dates: start: 20130404
  2. HYDROCORTISONE [Concomitant]
     Indication: ADRENALECTOMY
     Dosage: 100 UG, QID
  3. DOLIPRANE [Concomitant]
     Indication: PAIN
     Dosage: 4 G, QD
  4. CONTRAMAL [Concomitant]
     Indication: PAIN
     Dosage: 200 MG, QD
  5. DIFFU-K [Concomitant]
     Dosage: UNK, TID
  6. VALIUM [Concomitant]
     Dosage: UNK, QD
  7. ATROVENT [Concomitant]
     Indication: RESPIRATORY FAILURE
     Dosage: UNK, TID
  8. OXYGEN [Concomitant]
     Indication: RESPIRATORY FAILURE
     Dosage: UNK
     Route: 045
  9. OXYCONTIN [Concomitant]
     Indication: PAIN
     Dosage: UNK UNK, BID
     Dates: start: 2011
  10. OXYNORM [Concomitant]
     Indication: PAIN
     Dosage: UNK, TID
     Dates: start: 2011

REACTIONS (3)
  - Respiratory distress [Recovered/Resolved]
  - Suicide attempt [Recovered/Resolved]
  - Intentional overdose [Recovered/Resolved]
